FAERS Safety Report 9725573 (Version 1)
Quarter: 2013Q4

REPORT INFORMATION
  Report Type: Spontaneous
  Country: US (occurrence: None)
  Receive Date: 20131202
  Receipt Date: 20131202
  Transmission Date: 20140711
  Serious: Yes (Disabling)
  Sender: FDA-Public Use
  Company Number: None

PATIENT
  Age: 26 Year
  Sex: Female
  Weight: 77.11 kg

DRUGS (1)
  1. BIRTH CONTROL PILLS MICROGESTIN FE 1.5/30 [Suspect]
     Indication: CONTRACEPTION
     Route: 048
     Dates: start: 20130617, end: 20130703

REACTIONS (6)
  - Dizziness [None]
  - Headache [None]
  - Panic attack [None]
  - Impaired work ability [None]
  - Impaired driving ability [None]
  - Fear of crowded places [None]
